FAERS Safety Report 7544040-2 (Version None)
Quarter: 2011Q2

REPORT INFORMATION
  Report Type: 
  Country: None (occurrence: None)
  Receive Date: 20110613
  Receipt Date: 20050928
  Transmission Date: 20111010
  Serious: Yes (Hospitalization, Other)
  Sender: FDA-Public Use
  Company Number: PHNR2005AU01212

PATIENT
  Sex: Male

DRUGS (2)
  1. CLOZAPINE [Suspect]
     Indication: SCHIZOPHRENIA
     Dosage: 0 - 550 MG/DAY
     Dates: start: 20010621, end: 20050616
  2. ARIPIPRAZOLE [Suspect]

REACTIONS (5)
  - DELIRIUM [None]
  - MENTAL DISORDER [None]
  - NEUROLEPTIC MALIGNANT SYNDROME [None]
  - MALAISE [None]
  - BACTERIAL INFECTION [None]
